FAERS Safety Report 19957635 (Version 2)
Quarter: 2022Q4

REPORT INFORMATION
  Report Type: Spontaneous
  Country: US (occurrence: US)
  Receive Date: 20211014
  Receipt Date: 20221011
  Transmission Date: 20230113
  Serious: No
  Sender: FDA-Public Use
  Company Number: US-BAUSCH-BL-2021-034170

PATIENT
  Sex: Male

DRUGS (5)
  1. APLENZIN [Suspect]
     Active Substance: BUPROPION HYDROBROMIDE
     Indication: Depression
     Dosage: 2 WEEKS AGO ( FOR 2 DAYS)
     Route: 065
     Dates: start: 202109, end: 202109
  2. APLENZIN [Suspect]
     Active Substance: BUPROPION HYDROBROMIDE
     Indication: Social anxiety disorder
     Dosage: 2 WEEKS AGO ( FOR 2 DAYS)
     Route: 065
     Dates: start: 2021, end: 2021
  3. APLENZIN [Suspect]
     Active Substance: BUPROPION HYDROBROMIDE
     Indication: Attention deficit hyperactivity disorder
  4. APLENZIN [Suspect]
     Active Substance: BUPROPION HYDROBROMIDE
     Indication: Seasonal affective disorder
  5. BUPROPION [Suspect]
     Active Substance: BUPROPION
     Indication: Product used for unknown indication
     Route: 065

REACTIONS (7)
  - Trismus [Unknown]
  - Anger [Unknown]
  - Hypoaesthesia [Unknown]
  - Irritability [Unknown]
  - Tinnitus [Unknown]
  - Insomnia [Unknown]
  - Abdominal discomfort [Unknown]

NARRATIVE: CASE EVENT DATE: 20210901
